FAERS Safety Report 4712057-9 (Version None)
Quarter: 2005Q3

REPORT INFORMATION
  Report Type: 
  Country: None (occurrence: None)
  Receive Date: 20050708
  Receipt Date: 20041105
  Transmission Date: 20060218
  Serious: Yes (Other)
  Sender: FDA-Public Use
  Company Number: US-2004-034657

PATIENT
  Age: 57 Year
  Sex: Female

DRUGS (1)
  1. ULTRAVIST 300 [Suspect]
     Indication: COMPUTERISED TOMOGRAM THORAX
     Dosage: 1 DOSE, INTRAVENOUS
     Route: 042
     Dates: start: 20041029, end: 20041029

REACTIONS (7)
  - CONTRAST MEDIA REACTION [None]
  - COUGH [None]
  - DYSPNOEA [None]
  - TACHYCARDIA [None]
  - THROAT TIGHTNESS [None]
  - URTICARIA [None]
  - WHEEZING [None]
